FAERS Safety Report 18610095 (Version 3)
Quarter: 2022Q2

REPORT INFORMATION
  Report Type: Spontaneous
  Country: US (occurrence: US)
  Receive Date: 20201214
  Receipt Date: 20220407
  Transmission Date: 20220721
  Serious: Yes (Other)
  Sender: FDA-Public Use
  Company Number: US-GLAXOSMITHKLINE-US2020GSK246839

PATIENT
  Age: 74 Year
  Sex: Male
  Weight: 86.168 kg

DRUGS (5)
  1. ZANTAC [Suspect]
     Active Substance: RANITIDINE HYDROCHLORIDE
     Indication: Gastrooesophageal reflux disease
     Dosage: 150 MG, QD (OR AS NEEDED)
     Route: 065
     Dates: start: 1990, end: 2004
  2. ZANTAC [Suspect]
     Active Substance: RANITIDINE HYDROCHLORIDE
     Indication: Dyspepsia
  3. ZANTAC [Suspect]
     Active Substance: RANITIDINE HYDROCHLORIDE
     Indication: Product used for unknown indication
     Dosage: UNK
     Route: 065
  4. ZANTAC [Suspect]
     Active Substance: RANITIDINE HYDROCHLORIDE
     Indication: Gastrooesophageal reflux disease
     Dosage: 150 MG, QD (OR AS NEEDED)
     Route: 065
     Dates: start: 2004, end: 2018
  5. ZANTAC [Suspect]
     Active Substance: RANITIDINE HYDROCHLORIDE
     Indication: Dyspepsia

REACTIONS (10)
  - Prostate cancer [Unknown]
  - Erectile dysfunction [Unknown]
  - Prostatomegaly [Unknown]
  - Prostatitis [Unknown]
  - Prostatic calcification [Unknown]
  - Urine flow decreased [Unknown]
  - Haematuria [Unknown]
  - Organic erectile dysfunction [Unknown]
  - Nocturia [Unknown]
  - Benign prostatic hyperplasia [Unknown]

NARRATIVE: CASE EVENT DATE: 20191112
